FAERS Safety Report 23935871 (Version 1)
Quarter: 2024Q2

REPORT INFORMATION
  Report Type: Spontaneous
  Country: PL (occurrence: None)
  Receive Date: 20240604
  Receipt Date: 20240604
  Transmission Date: 20240715
  Serious: Yes (Life-Threatening)
  Sender: FDA-Public Use
  Company Number: None

PATIENT
  Age: 69 Year
  Sex: Male
  Weight: 93 kg

DRUGS (5)
  1. OBINUTUZUMAB [Suspect]
     Active Substance: OBINUTUZUMAB
     Indication: Chronic lymphocytic leukaemia
     Route: 042
     Dates: start: 20240320, end: 20240320
  2. METOPROLOL SUCCINATE [Concomitant]
     Active Substance: METOPROLOL SUCCINATE
     Dosage: THERAPY ONGOING
     Dates: start: 20240319
  3. PROPAFENONE [Concomitant]
     Active Substance: PROPAFENONE
     Dosage: THERAPY ONGOING
     Dates: start: 20240319
  4. DOXAR [DOXAZOSIN] [Concomitant]
     Dosage: THERAPY ONGOING
     Dates: start: 20240318
  5. ACENOCOUMAROL [Concomitant]
     Active Substance: ACENOCOUMAROL
     Dosage: THERAPY ONGOING
     Dates: start: 20240319

REACTIONS (9)
  - Oxygen saturation decreased [Recovered/Resolved]
  - Pallor [Recovered/Resolved]
  - Chest discomfort [Recovered/Resolved]
  - Loss of consciousness [Recovered/Resolved]
  - Dyspnoea [Recovered/Resolved]
  - Urinary incontinence [Recovered/Resolved]
  - Bradycardia [Recovered/Resolved]
  - Blood pressure decreased [Recovered/Resolved]
  - Asthenia [Recovered/Resolved]

NARRATIVE: CASE EVENT DATE: 20240320
